FAERS Safety Report 11929856 (Version 3)
Quarter: 2016Q2

REPORT INFORMATION
  Report Type: Report from Study
  Country: CA (occurrence: CA)
  Receive Date: 20160120
  Receipt Date: 20160428
  Transmission Date: 20160815
  Serious: Yes (Other)
  Sender: FDA-Public Use
  Company Number: CA-BAYER-2016-007019

PATIENT
  Age: 43 Year
  Sex: Female

DRUGS (7)
  1. BECLOFORTE [Concomitant]
  2. VENTOLIN [Concomitant]
     Active Substance: ALBUTEROL SULFATE
     Dosage: UNK UNK, PRN
  3. LYRICA [Concomitant]
     Active Substance: PREGABALIN
     Indication: ARTHRALGIA
  4. BETAFERON [Suspect]
     Active Substance: INTERFERON BETA-1B
     Indication: MULTIPLE SCLEROSIS
     Dosage: 0.25 MG, UNK
     Dates: start: 20110924
  5. VITAMIN B12 [Concomitant]
     Active Substance: CYANOCOBALAMIN
  6. VITAMIN D [Concomitant]
     Active Substance: CHOLECALCIFEROL
  7. FLOVENT [Concomitant]
     Active Substance: FLUTICASONE PROPIONATE

REACTIONS (18)
  - Fatigue [None]
  - Pain in extremity [None]
  - Nasopharyngitis [None]
  - Menorrhagia [None]
  - Systemic lupus erythematosus [None]
  - Joint crepitation [None]
  - Iron deficiency anaemia [Recovering/Resolving]
  - Joint lock [None]
  - Pruritus generalised [None]
  - Burning sensation [None]
  - Muscle spasms [None]
  - Benign renal neoplasm [None]
  - Erythema [None]
  - Benign hepatic neoplasm [None]
  - Generalised erythema [None]
  - Arthralgia [None]
  - Blood pressure increased [Recovered/Resolved]
  - Pain [None]

NARRATIVE: CASE EVENT DATE: 2015
